FAERS Safety Report 22180169 (Version 1)
Quarter: 2023Q2

REPORT INFORMATION
  Report Type: Spontaneous
  Country: US (occurrence: US)
  Receive Date: 20230406
  Receipt Date: 20230406
  Transmission Date: 20230722
  Serious: Yes (Other)
  Sender: FDA-Public Use
  Company Number: US-SUN PHARMACEUTICAL INDUSTRIES LTD-2023R1-381531

PATIENT
  Age: 49 Year
  Sex: Male

DRUGS (1)
  1. TESTOSTERONE [Suspect]
     Active Substance: TESTOSTERONE
     Indication: Product used for unknown indication
     Dosage: 400 MILLIGRAM BIWEEKLY
     Route: 030

REACTIONS (2)
  - Optic ischaemic neuropathy [Recovered/Resolved]
  - Open angle glaucoma [Recovered/Resolved]
